FAERS Safety Report 6391844-8 (Version None)
Quarter: 2009Q4

REPORT INFORMATION
  Report Type: 
  Country: None (occurrence: None)
  Receive Date: 20091007
  Receipt Date: 20090930
  Transmission Date: 20100525
  Serious: Yes (Life-Threatening, Hospitalization)
  Sender: FDA-Public Use
  Company Number: US-AVENTIS-200918808US

PATIENT
  Sex: Female

DRUGS (3)
  1. LANTUS [Suspect]
     Route: 058
     Dates: start: 20040101
  2. METFORMIN [Suspect]
     Dosage: DOSE: UNK
     Route: 048
     Dates: end: 20090101
  3. NOVOLIN                            /00030501/ [Suspect]
     Dosage: DOSE: UNK
     Route: 058
     Dates: end: 20090101

REACTIONS (5)
  - BLOOD GLUCOSE DECREASED [None]
  - BLOOD PRESSURE INCREASED [None]
  - DIABETIC COMA [None]
  - HYPERGLYCAEMIA [None]
  - MOANING [None]
